FAERS Safety Report 12647130 (Version 2)
Quarter: 2016Q3

REPORT INFORMATION
  Report Type: Spontaneous
  Country: US (occurrence: US)
  Receive Date: 20160812
  Receipt Date: 20160906
  Transmission Date: 20161109
  Serious: No
  Sender: FDA-Public Use
  Company Number: US-SHIRE-US201610093

PATIENT
  Age: 36 Year
  Sex: Female
  Weight: 56.69 kg

DRUGS (6)
  1. LOMOTIL [Concomitant]
     Active Substance: ATROPINE SULFATE\DIPHENOXYLATE HYDROCHLORIDE
     Indication: GASTROINTESTINAL STOMA OUTPUT INCREASED
     Dosage: 10 ML, 1X/DAY:QD
     Route: 048
  2. GATTEX [Suspect]
     Active Substance: TEDUGLUTIDE\WATER
     Indication: SHORT-BOWEL SYNDROME
     Dosage: 0.23 MG/KG, 1X/DAY:QD
     Route: 058
     Dates: start: 20160707
  3. LOVENOX [Concomitant]
     Active Substance: ENOXAPARIN SODIUM
     Indication: THROMBOSIS
     Dosage: 40 MG, 1X/DAY:QD
     Route: 058
  4. QUESTRAN [Concomitant]
     Active Substance: CHOLESTYRAMINE
     Indication: GASTROINTESTINAL STOMA OUTPUT INCREASED
     Dosage: 4 G, 2X/DAY:BID
     Route: 048
  5. SYNTHROID [Concomitant]
     Active Substance: LEVOTHYROXINE SODIUM
     Indication: HYPOTHYROIDISM
     Dosage: 25 ?G, 1X/DAY:QD
     Route: 048
  6. IMODIUM [Concomitant]
     Active Substance: LOPERAMIDE HYDROCHLORIDE
     Indication: GASTROINTESTINAL STOMA OUTPUT INCREASED
     Dosage: 4 MG, OTHER (DW)
     Route: 048

REACTIONS (1)
  - Incision site complication [Recovering/Resolving]

NARRATIVE: CASE EVENT DATE: 20160808
